FAERS Safety Report 4546565-0 (Version None)
Quarter: 2005Q1

REPORT INFORMATION
  Report Type: 
  Country: None (occurrence: None)
  Receive Date: 20050103
  Receipt Date: 20041223
  Transmission Date: 20050727
  Serious: Yes (Hospitalization)
  Sender: FDA-Public Use
  Company Number: CIP04002759

PATIENT
  Age: 95 Year
  Sex: Female

DRUGS (14)
  1. FURADANTIN [Suspect]
     Dosage: 150 MG, DAILY, ORAL
     Route: 048
     Dates: start: 20041120, end: 20041127
  2. KARDEGIC/FRA/ ACETYLSALICYLATE LYSINE) [Suspect]
     Dosage: SEE IMAGE
     Route: 048
     Dates: end: 20041127
  3. KARDEGIC/FRA/ ACETYLSALICYLATE LYSINE) [Suspect]
     Dosage: SEE IMAGE
     Route: 048
     Dates: start: 20041206
  4. EQUANIL [Suspect]
     Dosage: 200 MG DAILY, ORAL
     Route: 048
     Dates: start: 20040816, end: 20041127
  5. OMEPRAZOLE [Suspect]
     Dosage: 20 MG DAILY, ORAL
     Route: 048
     Dates: start: 20041020, end: 20041201
  6. ESIDRIX [Suspect]
     Dosage: 12.5 MG DAILY, ORAL
     Route: 048
     Dates: start: 20041102, end: 20041119
  7. ESIDRIX [Suspect]
     Dosage: 12.5 MG DAILY, ORAL
     Route: 048
     Dates: start: 20041124, end: 20041127
  8. BISOPROLOL FUMARATE [Concomitant]
  9. QUINAPRIL HCL [Concomitant]
  10. ARICEPT [Concomitant]
  11. NITROGLYCERIN [Concomitant]
  12. DUPHALAC [Concomitant]
  13. LASILIX (FUROSEMIDE) [Concomitant]
  14. IMOVANE (ZOPICLONE) [Concomitant]

REACTIONS (4)
  - HENOCH-SCHONLEIN PURPURA [None]
  - HYPONATRAEMIA [None]
  - LEUKOPENIA [None]
  - NEUTROPENIA [None]
